FAERS Safety Report 21758415 (Version 2)
Quarter: 2023Q1

REPORT INFORMATION
  Report Type: Spontaneous
  Country: US (occurrence: US)
  Receive Date: 20221221
  Receipt Date: 20230213
  Transmission Date: 20230417
  Serious: Yes (Other)
  Sender: FDA-Public Use
  Company Number: US-BRISTOL-MYERS SQUIBB COMPANY-2022-115826

PATIENT
  Age: 37 Year
  Sex: Female

DRUGS (1)
  1. IDHIFA [Suspect]
     Active Substance: ENASIDENIB MESYLATE
     Indication: Oligodendroglioma
     Dosage: FREQ : TAKE 1 TABLET BY MOUTH ONCE DAILY
     Route: 048
     Dates: start: 20220608, end: 20220914

REACTIONS (2)
  - Malignant neoplasm progression [Unknown]
  - Off label use [Unknown]
